FAERS Safety Report 4764844-9 (Version None)
Quarter: 2005Q3

REPORT INFORMATION
  Report Type: 
  Country: None (occurrence: None)
  Receive Date: 20050909
  Receipt Date: 20050829
  Transmission Date: 20060218
  Serious: Yes (Hospitalization)
  Sender: FDA-Public Use
  Company Number: PHHO2005JP13599

PATIENT
  Age: 69 Year
  Sex: Female

DRUGS (16)
  1. LUDIOMIL [Suspect]
     Indication: INSOMNIA
     Dosage: 60 MG, QD
     Route: 048
  2. REMICADE [Suspect]
     Indication: RHEUMATOID ARTHRITIS
     Dosage: 3 MG/KG, QD
     Route: 042
     Dates: start: 20050404
  3. RHEUMATREX [Suspect]
     Indication: RHEUMATOID ARTHRITIS
     Dosage: 4 MG, QW
     Route: 048
     Dates: start: 20001018
  4. RHEUMATREX [Suspect]
     Dosage: 8 MG, QW
     Route: 048
  5. BREDININ [Suspect]
     Indication: RHEUMATOID ARTHRITIS
  6. PREDNISOLONE [Suspect]
     Indication: RHEUMATOID ARTHRITIS
  7. ADALAT [Concomitant]
     Indication: HYPERTENSION
  8. LASIX [Concomitant]
  9. VOLTAREN [Concomitant]
     Indication: RHEUMATOID ARTHRITIS
  10. OLMETEC [Concomitant]
  11. TAKEPRON [Concomitant]
  12. PROMAC [Concomitant]
  13. NAUZELIN [Concomitant]
  14. YODEL [Concomitant]
  15. POSTERISAN [Concomitant]
  16. FOLIAMIN [Concomitant]

REACTIONS (4)
  - FATIGUE [None]
  - HEPATIC FUNCTION ABNORMAL [None]
  - PNEUMONIA BACTERIAL [None]
  - PYREXIA [None]
